FAERS Safety Report 24233324 (Version 1)
Quarter: 2024Q3

REPORT INFORMATION
  Report Type: Spontaneous
  Country: US (occurrence: US)
  Receive Date: 20240821
  Receipt Date: 20240821
  Transmission Date: 20241016
  Serious: No
  Sender: SANOFI AVENTIS
  Company Number: US-SA-SAC20240814000246

PATIENT
  Age: 70 Year
  Sex: Female

DRUGS (1)
  1. DUPIXENT [Suspect]
     Active Substance: DUPILUMAB
     Indication: Nasal polyps
     Dosage: 300 MG;QOW
     Route: 058
     Dates: start: 20240625

REACTIONS (4)
  - Injection site warmth [Unknown]
  - Dizziness [Unknown]
  - Injection site rash [Unknown]
  - Injection site erythema [Unknown]
